FAERS Safety Report 25724678 (Version 1)
Quarter: 2025Q3

REPORT INFORMATION
  Report Type: Spontaneous
  Country: EU (occurrence: EU)
  Receive Date: 20250826
  Receipt Date: 20250826
  Transmission Date: 20251020
  Serious: Yes (Hospitalization, Congenital Anomaly)
  Sender: CHEPLAPHARM
  Company Number: None

PATIENT
  Sex: Female
  Weight: 3.45 kg

DRUGS (7)
  1. QUETIAPINE [Suspect]
     Active Substance: QUETIAPINE
     Dosage: IMMEDIATE RELEASE TABLET?DAILY DOSE: 200 MILLIGRAM
     Route: 064
     Dates: start: 202311, end: 202408
  2. QUETIAPINE [Suspect]
     Active Substance: QUETIAPINE
     Dosage: SUSTAINED RELEASE TABLET?DAILY DOSE: 100 MILLIGRAM
     Route: 064
     Dates: start: 202311, end: 202408
  3. ARIPIPRAZOLE [Suspect]
     Active Substance: ARIPIPRAZOLE
     Dosage: DAILY DOSE: 15 MILLIGRAM
     Route: 064
     Dates: start: 202311, end: 202408
  4. ACETAMINOPHEN [Suspect]
     Active Substance: ACETAMINOPHEN
     Dosage: FOR ONE WEEK, APPROXIMATELY 1000 MG/D?DAILY DOSE: 1000 MILLI-INTERNATIONAL UNIT
     Route: 064
     Dates: start: 202312, end: 202312
  5. LEVOTHYROXINE SODIUM [Suspect]
     Active Substance: LEVOTHYROXINE SODIUM
     Dosage: DAILY DOSE: 150 MICROGRAM
     Route: 064
     Dates: start: 202311, end: 202408
  6. PERTUSSIS VACCINE [Suspect]
     Active Substance: PERTUSSIS VACCINE
     Route: 064
  7. FOLIC ACID [Concomitant]
     Active Substance: FOLIC ACID
     Route: 064

REACTIONS (3)
  - Ventricular septal defect [Not Recovered/Not Resolved]
  - Atrial septal defect [Unknown]
  - Foetal exposure during pregnancy [Unknown]

NARRATIVE: CASE EVENT DATE: 20240801
